FAERS Safety Report 10690740 (Version 1)
Quarter: 2014Q4

REPORT INFORMATION
  Report Type: Spontaneous
  Country: US (occurrence: None)
  Receive Date: 20141218
  Receipt Date: 20141218
  Transmission Date: 20150529
  Serious: Yes (Hospitalization)
  Sender: FDA-Public Use
  Company Number: PHEH2014US002719

PATIENT
  Age: 54 Year
  Sex: Male

DRUGS (7)
  1. MINOXIDIL. [Concomitant]
     Active Substance: MINOXIDIL
  2. ATORVASTATIN [Concomitant]
     Active Substance: ATORVASTATIN
  3. FUROSEMIDE. [Concomitant]
     Active Substance: FUROSEMIDE
  4. METOPROLOL [Concomitant]
     Active Substance: METOPROLOL
  5. PREDNISONE. [Suspect]
     Active Substance: PREDNISONE
  6. MYFORTIC [Suspect]
     Active Substance: MYCOPHENOLATE SODIUM
     Dates: start: 200306
  7. AMLODIPINE [Concomitant]
     Active Substance: AMLODIPINE BESYLATE

REACTIONS (1)
  - Hypertension [None]
